FAERS Safety Report 9625420 (Version 1)
Quarter: 2013Q4

REPORT INFORMATION
  Report Type: Spontaneous
  Country: US (occurrence: US)
  Receive Date: 20131016
  Receipt Date: 20131016
  Transmission Date: 20140711
  Serious: No
  Sender: FDA-Public Use
  Company Number: US-PFIZER INC-2013296119

PATIENT
  Age: 43 Year
  Sex: Male
  Weight: 86.2 kg

DRUGS (4)
  1. PRISTIQ [Suspect]
     Indication: DEPRESSION
     Dosage: 50 MG, DAILY
  2. PRISTIQ [Suspect]
     Dosage: 100 MG, DAILY
  3. XANAX [Suspect]
     Indication: ANXIETY
     Dosage: UNK
  4. ABILIFY [Suspect]
     Indication: DEPRESSION
     Dosage: UNK

REACTIONS (1)
  - Anxiety [Not Recovered/Not Resolved]
